FAERS Safety Report 17158834 (Version 1)
Quarter: 2019Q4

REPORT INFORMATION
  Report Type: Spontaneous
  Country: US (occurrence: US)
  Receive Date: 20191122
  Receipt Date: 20191122
  Transmission Date: 20200122
  Serious: Yes (Disabling)
  Sender: FDA-Public Use
  Company Number: None

PATIENT
  Age: 81 Year
  Sex: Female
  Weight: 90.72 kg

DRUGS (9)
  1. TAMOXIFEN [Concomitant]
     Active Substance: TAMOXIFEN
  2. ELIQUIS [Concomitant]
     Active Substance: APIXABAN
  3. PRIOBIOTICS [Concomitant]
  4. CLINDAMYCIN HCL 300MG CAP-GENERIC CLASIN 300MG CAP [Suspect]
     Active Substance: CLINDAMYCIN HYDROCHLORIDE
     Indication: ANTIBIOTIC PROPHYLAXIS
     Dosage: ?          QUANTITY:300 MG MILLIGRAM(S);?
     Route: 048
     Dates: start: 20190912, end: 20190915
  5. VERAPAMIL [Concomitant]
     Active Substance: VERAPAMIL HYDROCHLORIDE
  6. FISH OIL [Concomitant]
     Active Substance: FISH OIL
  7. VIT D [Concomitant]
     Active Substance: VITAMIN D NOS
  8. CRESTOR [Concomitant]
     Active Substance: ROSUVASTATIN CALCIUM
  9. CATS CLAW [Concomitant]

REACTIONS (3)
  - Pruritus [None]
  - Product substitution issue [None]
  - Vulvovaginal pruritus [None]

NARRATIVE: CASE EVENT DATE: 20191112
